FAERS Safety Report 7794811-2 (Version None)
Quarter: 2011Q4

REPORT INFORMATION
  Report Type: 
  Country: None (occurrence: None)
  Receive Date: 20111004
  Receipt Date: 20110927
  Transmission Date: 20120403
  Serious: No
  Sender: FDA-Public Use
  Company Number: US-PFIZER INC-2011212614

PATIENT
  Sex: Female

DRUGS (2)
  1. TRAZODONE HCL [Suspect]
     Dosage: UNK
  2. EFFEXOR XR [Suspect]
     Dosage: UNKNOWN DOSE, UNKNOWN FREQUENCY

REACTIONS (3)
  - NAUSEA [None]
  - DIZZINESS [None]
  - GASTRIC DISORDER [None]
